FAERS Safety Report 8494874-5 (Version None)
Quarter: 2012Q3

REPORT INFORMATION
  Report Type: 
  Country: None (occurrence: None)
  Receive Date: 20120709
  Receipt Date: 20120625
  Transmission Date: 20120928
  Serious: Yes (Death, Hospitalization)
  Sender: FDA-Public Use
  Company Number: GB-NOVOPROD-354456

PATIENT
  Age: 66 Year
  Sex: Female

DRUGS (16)
  1. VAGIFEM [Suspect]
     Indication: ATROPHIC VULVOVAGINITIS
     Dosage: 25 A?G, UNK
     Route: 067
     Dates: start: 20120217
  2. FLUOXETINE [Concomitant]
     Indication: FIBROMYALGIA
     Dosage: 20 MG, BID
     Dates: end: 20120313
  3. AMITRIPTYLINE HCL [Concomitant]
     Indication: PRODUCT USED FOR UNKNOWN INDICATION
     Dosage: 40 MG, UNK
  4. ASPIRIN [Concomitant]
     Indication: ARTERIOGRAM CORONARY
     Dosage: 75 MG, QD
     Route: 065
  5. NEBIVOLOL [Concomitant]
     Indication: MYOCARDIAL ISCHAEMIA
     Dosage: 1/1 DAYS
  6. ALBUTEROL SULATE [Concomitant]
     Indication: PRODUCT USED FOR UNKNOWN INDICATION
     Dosage: UNK
     Dates: end: 20120313
  7. RAMIPRIL [Concomitant]
     Indication: ESSENTIAL HYPERTENSION
     Dosage: 1/1  DAYS
     Dates: end: 20120313
  8. GLICLAZIDE [Concomitant]
     Indication: PRODUCT USED FOR UNKNOWN INDICATION
     Dosage: UNK
     Dates: end: 20120313
  9. LEVOTHYROXINE SODIUM [Concomitant]
     Indication: HYPOTHYROIDISM
  10. METFORMIN HCL [Concomitant]
     Indication: PRODUCT USED FOR UNKNOWN INDICATION
     Dosage: 850 MG, TID
     Dates: end: 20120313
  11. SALMETEROL [Concomitant]
     Indication: ASTHMA
     Route: 055
  12. CLOBETASOL PROPIONATE [Suspect]
     Indication: ATROPHIC VULVOVAGINITIS
     Dosage: 2/
     Route: 061
     Dates: start: 20120217
  13. NITROGLYCERIN [Concomitant]
     Indication: MYOCARDIAL ISCHAEMIA
     Dosage: UNK, PRN
     Dates: end: 20120313
  14. MEBEVERINE [Concomitant]
     Indication: PRODUCT USED FOR UNKNOWN INDICATION
     Dosage: 135 MG, TID
     Dates: end: 20120313
  15. SIMVASTATIN [Concomitant]
     Indication: PRODUCT USED FOR UNKNOWN INDICATION
     Dosage: 40 MG, QD
  16. TRIMETHOPRIM [Suspect]
     Indication: ATROPHIC VULVOVAGINITIS
     Dosage: 200 MG, BID
     Dates: start: 20120217

REACTIONS (24)
  - LIMB ASYMMETRY [None]
  - MICTURITION URGENCY [None]
  - CEREBROVASCULAR ACCIDENT [None]
  - VIITH NERVE PARALYSIS [None]
  - DYSARTHRIA [None]
  - NECK PAIN [None]
  - CEREBRAL HAEMORRHAGE [None]
  - EXTENSOR PLANTAR RESPONSE [None]
  - MUSCLE TWITCHING [None]
  - MUSCLE RIGIDITY [None]
  - HEADACHE [None]
  - VOMITING [None]
  - FALL [None]
  - CONVULSION [None]
  - SNORING [None]
  - ESSENTIAL HYPERTENSION [None]
  - DEFAECATION URGENCY [None]
  - FACIAL ASYMMETRY [None]
  - PUPILLARY REFLEX IMPAIRED [None]
  - SPEECH DISORDER [None]
  - VISUAL FIELD DEFECT [None]
  - MUSCULAR WEAKNESS [None]
  - FACIAL PARESIS [None]
  - HYPERTONIA [None]
